FAERS Safety Report 9919990 (Version 1)
Quarter: 2014Q1

REPORT INFORMATION
  Report Type: Spontaneous
  Country: US (occurrence: US)
  Receive Date: 20140224
  Receipt Date: 20140224
  Transmission Date: 20141002
  Serious: Yes (Other)
  Sender: FDA-Public Use
  Company Number: US-ELI_LILLY_AND_COMPANY-US201402004764

PATIENT
  Sex: Female

DRUGS (11)
  1. HUMALOG LISPRO [Suspect]
     Indication: TYPE 2 DIABETES MELLITUS
     Dosage: 28 U, OTHER
     Route: 065
  2. GABAPENTIN [Concomitant]
     Dosage: 600 MG, TID
  3. VITAMIN D                          /00107901/ [Concomitant]
  4. ASPIRIN [Concomitant]
     Dosage: 81 MG, UNKNOWN
  5. RANITIDINE [Concomitant]
     Dosage: 150 MG, UNKNOWN
  6. FENOFIBRATE [Concomitant]
     Dosage: 145 MG, UNKNOWN
  7. VITAMIN B12                        /00056201/ [Concomitant]
     Dosage: 1000 MG, UNKNOWN
  8. ATORVASTATIN [Concomitant]
     Dosage: 40 MG, QD
  9. LISINOPRIL [Concomitant]
     Dosage: 40 MG, QD
  10. COREG [Concomitant]
     Dosage: 12.5 MG, BID
  11. LANTUS [Concomitant]

REACTIONS (1)
  - Glaucoma [Unknown]
